FAERS Safety Report 7575297-X (Version None)
Quarter: 2011Q2

REPORT INFORMATION
  Report Type: 
  Country: None (occurrence: None)
  Receive Date: 20110627
  Receipt Date: 20110620
  Transmission Date: 20111010
  Serious: Yes (Other)
  Sender: FDA-Public Use
  Company Number: BR-PFIZER INC-2010013456

PATIENT
  Age: 56 Year
  Sex: Female
  Weight: 75.8 kg

DRUGS (26)
  1. METFORMIN HYDROCHLORIDE [Concomitant]
     Indication: PROPHYLAXIS
     Dosage: 500 MG, UNK
     Dates: start: 20080101
  2. VARENICLINE TARTRATE [Suspect]
     Dosage: 1 MG, 1X/DAY
     Route: 048
     Dates: start: 20100101, end: 20100101
  3. OSCAL [Concomitant]
     Indication: OSTEOPENIA
     Dosage: 500 MG, UNK
     Dates: start: 20020101
  4. ALENTHUS [Concomitant]
     Indication: ANXIETY
  5. LIPLESS [Concomitant]
     Indication: BLOOD TRIGLYCERIDES INCREASED
     Dosage: 5 MG, UNK
     Dates: start: 20050101
  6. ALPRAZOLAM [Concomitant]
     Indication: PANIC DISORDER
     Dosage: 2 MG, UNK
  7. LOSARTAN [Concomitant]
     Indication: HYPERTENSION
     Dosage: 1 TABLET (UNKNOWN STRENGTH) DAILY
  8. VARENICLINE TARTRATE [Suspect]
     Dosage: 1 TABLET (UNKNOWN DOSE), ONCE DAILY
     Route: 048
     Dates: start: 20100101, end: 20100101
  9. VARENICLINE TARTRATE [Suspect]
     Dosage: UNK
     Dates: start: 20110101
  10. VENLIFT OD [Concomitant]
     Indication: PANIC DISORDER
     Dosage: 75 MG, UNK
     Dates: start: 20020101
  11. VARENICLINE TARTRATE [Suspect]
     Indication: TOBACCO USER
     Dosage: 0.5 MG, 1X/DAY
     Route: 048
     Dates: start: 20100121, end: 20100101
  12. VARENICLINE TARTRATE [Suspect]
     Dosage: UNK
     Dates: start: 20110412
  13. VENLIFT OD [Concomitant]
     Indication: ANXIETY
  14. METFORMIN HYDROCHLORIDE [Concomitant]
     Indication: HYPERGLYCAEMIA
  15. VARENICLINE TARTRATE [Suspect]
     Dosage: 0.5 MG, 2X/DAY
     Route: 048
     Dates: start: 20100101, end: 20100101
  16. VARENICLINE TARTRATE [Suspect]
     Dosage: UNK
     Dates: start: 20100208, end: 20100428
  17. OSTEONUTRI [Concomitant]
     Dosage: UNK
     Dates: start: 20020101
  18. ALENTHUS [Concomitant]
     Indication: PANIC DISORDER
     Dosage: 150 MG, UNK
     Dates: start: 20040101
  19. AMLODIPINE BESILATE [Concomitant]
     Indication: HYPERTENSION
     Dosage: 10 MG, UNK
     Dates: start: 20040101
  20. LOSARTAN [Concomitant]
     Dosage: 2 TABLETS (UNKNOWN STRENGTH) DAILY
  21. VARENICLINE TARTRATE [Suspect]
     Dosage: 1 MG, 2X/DAY, EVERY 12 HOURS
     Route: 048
     Dates: start: 20100101, end: 20100101
  22. DIACEREIN [Concomitant]
     Dosage: UNK
  23. LOSARTAN POTASSIUM [Concomitant]
     Indication: HYPERTENSION
     Dosage: 50 MG, UNK
     Dates: start: 20040101
  24. SIMVASTATIN [Concomitant]
     Indication: BLOOD CHOLESTEROL INCREASED
     Dosage: 40 MG, UNK
     Dates: start: 20040101
  25. ALPRAZOLAM [Concomitant]
     Indication: ANXIETY
  26. HYDROCHLOROTHIAZIDE [Concomitant]
     Indication: HYPERTENSION
     Dosage: 25 MG, UNK

REACTIONS (8)
  - ANXIETY [None]
  - APATHY [None]
  - NODULE [None]
  - LUNG CYST [None]
  - OESOPHAGITIS [None]
  - DIARRHOEA [None]
  - VIRAL INFECTION [None]
  - HELICOBACTER INFECTION [None]
